FAERS Safety Report 22020362 (Version 2)
Quarter: 2023Q1

REPORT INFORMATION
  Report Type: Spontaneous
  Country: CN (occurrence: CN)
  Receive Date: 20230222
  Receipt Date: 20230227
  Transmission Date: 20230418
  Serious: Yes (Other)
  Sender: FDA-Public Use
  Company Number: CN-MLMSERVICE-20230210-4101541-2

PATIENT
  Age: 52 Year
  Sex: Female

DRUGS (63)
  1. IRINOTECAN HYDROCHLORIDE [Suspect]
     Active Substance: IRINOTECAN HYDROCHLORIDE
     Indication: Metastases to lymph nodes
     Dosage: FREQ:7 (CYCLICAL);120 MG ON D1, D8, D15  IV X 7 CYCLES
     Route: 042
     Dates: start: 201804, end: 201810
  2. IRINOTECAN HYDROCHLORIDE [Suspect]
     Active Substance: IRINOTECAN HYDROCHLORIDE
     Indication: Metastases to bladder
  3. IRINOTECAN HYDROCHLORIDE [Suspect]
     Active Substance: IRINOTECAN HYDROCHLORIDE
     Indication: Metastases to rectum
  4. IRINOTECAN HYDROCHLORIDE [Suspect]
     Active Substance: IRINOTECAN HYDROCHLORIDE
     Indication: Metastases to pleura
  5. IRINOTECAN HYDROCHLORIDE [Suspect]
     Active Substance: IRINOTECAN HYDROCHLORIDE
     Indication: Metastases to stomach
  6. IRINOTECAN HYDROCHLORIDE [Suspect]
     Active Substance: IRINOTECAN HYDROCHLORIDE
     Indication: Ovarian cancer metastatic
  7. IRINOTECAN HYDROCHLORIDE [Suspect]
     Active Substance: IRINOTECAN HYDROCHLORIDE
     Indication: Serous cystadenocarcinoma ovary
  8. DOCETAXEL [Suspect]
     Active Substance: DOCETAXEL
     Indication: Metastases to lymph nodes
     Dosage: 115 MG, CYCLIC
     Route: 042
     Dates: start: 20180201, end: 20180228
  9. DOCETAXEL [Suspect]
     Active Substance: DOCETAXEL
     Indication: Ovarian cancer metastatic
     Dosage: 120 MG, CYCLIC
     Route: 042
     Dates: start: 20171227
  10. DOCETAXEL [Suspect]
     Active Substance: DOCETAXEL
     Indication: Serous cystadenocarcinoma ovary
  11. DOCETAXEL [Suspect]
     Active Substance: DOCETAXEL
     Indication: Metastases to pleura
  12. DOCETAXEL [Suspect]
     Active Substance: DOCETAXEL
     Indication: Metastases to rectum
  13. DOCETAXEL [Suspect]
     Active Substance: DOCETAXEL
     Indication: Metastases to stomach
  14. DOCETAXEL [Suspect]
     Active Substance: DOCETAXEL
     Indication: Metastases to bladder
  15. CISPLATIN [Suspect]
     Active Substance: CISPLATIN
     Indication: Ovarian cancer metastatic
     Dosage: FREQ:3 (CYCLICAL);
     Route: 042
     Dates: start: 20200408, end: 20200610
  16. CISPLATIN [Suspect]
     Active Substance: CISPLATIN
     Indication: Metastases to bladder
     Dosage: 80 MG, CYCLIC
     Route: 042
     Dates: start: 20171227
  17. CISPLATIN [Suspect]
     Active Substance: CISPLATIN
     Indication: Serous cystadenocarcinoma ovary
     Dosage: 110 MG, CYCLIC
     Route: 042
     Dates: start: 20170914, end: 2017
  18. CISPLATIN [Suspect]
     Active Substance: CISPLATIN
     Indication: Metastases to stomach
     Dosage: 115 MG, CYCLIC
     Route: 042
     Dates: start: 20180201, end: 20180228
  19. CISPLATIN [Suspect]
     Active Substance: CISPLATIN
     Indication: Metastases to lymph nodes
     Dosage: 80 MG, CYCLIC
     Route: 042
     Dates: start: 20171122, end: 2017
  20. CISPLATIN [Suspect]
     Active Substance: CISPLATIN
     Indication: Metastases to rectum
     Dosage: 80 MG, CYCLIC
     Route: 042
     Dates: start: 20171021, end: 2017
  21. CISPLATIN [Suspect]
     Active Substance: CISPLATIN
     Indication: Metastases to pleura
     Dosage: 120 MG, CYCLIC
     Route: 042
     Dates: start: 20200307, end: 2020
  22. PACLITAXEL [Suspect]
     Active Substance: PACLITAXEL
     Indication: Serous cystadenocarcinoma ovary
     Dosage: FREQ:6 (CYCLICAL);
     Route: 042
     Dates: start: 2016
  23. PACLITAXEL [Suspect]
     Active Substance: PACLITAXEL
     Indication: Metastases to bladder
     Dosage: FREQ:4 (CYCLICAL);
     Route: 042
     Dates: start: 20170529, end: 20170809
  24. PACLITAXEL [Suspect]
     Active Substance: PACLITAXEL
     Indication: Metastases to stomach
  25. PACLITAXEL [Suspect]
     Active Substance: PACLITAXEL
     Indication: Metastases to rectum
  26. PACLITAXEL [Suspect]
     Active Substance: PACLITAXEL
     Indication: Metastases to lymph nodes
  27. PACLITAXEL [Suspect]
     Active Substance: PACLITAXEL
     Indication: Ovarian cancer metastatic
  28. PACLITAXEL [Suspect]
     Active Substance: PACLITAXEL
     Indication: Metastases to pleura
  29. GEMCITABINE [Suspect]
     Active Substance: GEMCITABINE
     Indication: Metastases to bladder
     Dosage: 1.0 G ON D1,D8
     Route: 042
     Dates: start: 20171122, end: 2017
  30. GEMCITABINE [Suspect]
     Active Substance: GEMCITABINE
     Indication: Ovarian cancer metastatic
     Dosage: 1.5 G ON D1, D8, D15
     Route: 042
     Dates: start: 20170914, end: 2017
  31. GEMCITABINE [Suspect]
     Active Substance: GEMCITABINE
     Indication: Metastases to stomach
     Dosage: 1.2 G ON D1, 1.0 G ON D8
     Route: 042
     Dates: start: 20171021, end: 2017
  32. GEMCITABINE [Suspect]
     Active Substance: GEMCITABINE
     Indication: Metastases to rectum
  33. GEMCITABINE [Suspect]
     Active Substance: GEMCITABINE
     Indication: Metastases to pleura
  34. GEMCITABINE [Suspect]
     Active Substance: GEMCITABINE
     Indication: Metastases to lymph nodes
  35. GEMCITABINE [Suspect]
     Active Substance: GEMCITABINE
     Indication: Serous cystadenocarcinoma ovary
  36. DOXORUBICIN [Suspect]
     Active Substance: DOXORUBICIN
     Indication: Ovarian cancer metastatic
     Dosage: 50 MG, CYCLIC(DOXORUBICIN LIPOSOME)
     Route: 042
     Dates: start: 20200307, end: 2020
  37. DOXORUBICIN [Suspect]
     Active Substance: DOXORUBICIN
     Indication: Metastases to bladder
     Dosage: FREQ:3 (CYCLICAL); (DOXORUBICIN LIPOSOME)
     Route: 042
     Dates: start: 20200408, end: 20200610
  38. DOXORUBICIN [Suspect]
     Active Substance: DOXORUBICIN
     Indication: Metastases to pleura
     Dosage: FREQ:4 (CYCLICAL); (DOXORUBICIN LIPOSOME)
     Route: 042
     Dates: start: 20191115, end: 20200207
  39. DOXORUBICIN [Suspect]
     Active Substance: DOXORUBICIN
     Indication: Metastases to rectum
  40. DOXORUBICIN [Suspect]
     Active Substance: DOXORUBICIN
     Indication: Metastases to lymph nodes
  41. DOXORUBICIN [Suspect]
     Active Substance: DOXORUBICIN
     Indication: Metastases to stomach
  42. DOXORUBICIN [Suspect]
     Active Substance: DOXORUBICIN
     Indication: Serous cystadenocarcinoma ovary
  43. BEVACIZUMAB [Suspect]
     Active Substance: BEVACIZUMAB
     Indication: Ovarian cancer metastatic
     Dosage: FREQ:7 (CYCLICAL);BEVACIZUMAB 300 MG Q3W IV X 7 CYCLES
     Route: 042
     Dates: start: 201804, end: 201810
  44. BEVACIZUMAB [Suspect]
     Active Substance: BEVACIZUMAB
     Indication: Metastases to rectum
     Dosage: FREQ:4 (CYCLICAL);
     Route: 042
     Dates: start: 20191115, end: 20200207
  45. BEVACIZUMAB [Suspect]
     Active Substance: BEVACIZUMAB
     Indication: Metastases to stomach
     Dosage: 480 MG, CYCLIC
     Route: 042
     Dates: start: 20200307, end: 2020
  46. BEVACIZUMAB [Suspect]
     Active Substance: BEVACIZUMAB
     Indication: Metastases to pleura
     Dosage: FREQ:5 (CYCLICAL);
     Route: 042
     Dates: start: 20190614, end: 20191017
  47. BEVACIZUMAB [Suspect]
     Active Substance: BEVACIZUMAB
     Indication: Metastases to bladder
  48. BEVACIZUMAB [Suspect]
     Active Substance: BEVACIZUMAB
     Indication: Metastases to lymph nodes
  49. BEVACIZUMAB [Suspect]
     Active Substance: BEVACIZUMAB
     Indication: Serous cystadenocarcinoma ovary
  50. CARBOPLATIN [Suspect]
     Active Substance: CARBOPLATIN
     Indication: Serous cystadenocarcinoma ovary
     Dosage: FREQ:4 (CYCLICAL);
     Route: 042
     Dates: start: 20170529, end: 20170809
  51. CARBOPLATIN [Suspect]
     Active Substance: CARBOPLATIN
     Indication: Metastases to lymph nodes
     Dosage: FREQ:6 (CYCLICAL);
     Route: 042
     Dates: start: 2016
  52. CARBOPLATIN [Suspect]
     Active Substance: CARBOPLATIN
     Indication: Metastases to rectum
  53. CARBOPLATIN [Suspect]
     Active Substance: CARBOPLATIN
     Indication: Metastases to pleura
  54. CARBOPLATIN [Suspect]
     Active Substance: CARBOPLATIN
     Indication: Metastases to stomach
  55. CARBOPLATIN [Suspect]
     Active Substance: CARBOPLATIN
     Indication: Metastases to bladder
  56. CARBOPLATIN [Suspect]
     Active Substance: CARBOPLATIN
     Indication: Ovarian cancer metastatic
  57. OLAPARIB [Concomitant]
     Active Substance: OLAPARIB
     Indication: Ovarian cancer metastatic
     Dosage: FREQ:12 H;300 MG PO BID
     Route: 048
     Dates: start: 20190614, end: 20191017
  58. OLAPARIB [Concomitant]
     Active Substance: OLAPARIB
     Indication: Metastases to stomach
     Dosage: FREQ:12 H;300 MG PO BID
     Route: 048
     Dates: start: 201901, end: 201906
  59. OLAPARIB [Concomitant]
     Active Substance: OLAPARIB
     Indication: Metastases to rectum
  60. OLAPARIB [Concomitant]
     Active Substance: OLAPARIB
     Indication: Metastases to pleura
  61. OLAPARIB [Concomitant]
     Active Substance: OLAPARIB
     Indication: Metastases to bladder
  62. OLAPARIB [Concomitant]
     Active Substance: OLAPARIB
     Indication: Metastases to lymph nodes
  63. OLAPARIB [Concomitant]
     Active Substance: OLAPARIB
     Indication: Serous cystadenocarcinoma ovary

REACTIONS (1)
  - Chronic kidney disease [Unknown]

NARRATIVE: CASE EVENT DATE: 20200601
